FAERS Safety Report 8603302-8 (Version None)
Quarter: 2012Q3

REPORT INFORMATION
  Report Type: 
  Country: None (occurrence: None)
  Receive Date: 20120817
  Receipt Date: 20120814
  Transmission Date: 20120928
  Serious: Yes (Hospitalization)
  Sender: FDA-Public Use
  Company Number: PHHY2012VE021031

PATIENT
  Sex: Female

DRUGS (4)
  1. ZOLEDRONOC ACID [Suspect]
     Indication: OSTEOPOROSIS
     Dosage: UNK UKN, UNK
     Route: 042
     Dates: start: 20100510
  2. MAGNESIUM [Concomitant]
     Dosage: ONE DAILY
  3. CALCIUM CARBONATE [Concomitant]
     Dosage: ONE DAILY
  4. ZOLEDRONOC ACID [Suspect]
     Dosage: UNK UKN, UNK
     Route: 042
     Dates: start: 20110510

REACTIONS (6)
  - URINE CALCIUM [None]
  - AUTOIMMUNE HEPATITIS [None]
  - PARATHYROID CYST [None]
  - DECREASED IMMUNE RESPONSIVENESS [None]
  - ASTHENIA [None]
  - YELLOW SKIN [None]
